FAERS Safety Report 17598686 (Version 1)
Quarter: 2020Q1

REPORT INFORMATION
  Report Type: Spontaneous
  Country: US (occurrence: US)
  Receive Date: 20200329
  Receipt Date: 20200329
  Transmission Date: 20200409
  Serious: No
  Sender: FDA-Public Use
  Company Number: None

PATIENT
  Age: 18 Year
  Sex: Female
  Weight: 52.2 kg

DRUGS (8)
  1. ONDANSETRON [Concomitant]
     Active Substance: ONDANSETRON
  2. TUMS SMOOTHIES [Concomitant]
     Active Substance: CALCIUM CARBONATE
  3. SEABANDS [Concomitant]
  4. LINZESS [Suspect]
     Active Substance: LINACLOTIDE
     Indication: IRRITABLE BOWEL SYNDROME
     Dates: start: 20200327
  5. PEPCID EXTRA STRENGTH [Concomitant]
  6. SPRINTEC [Concomitant]
     Active Substance: ETHINYL ESTRADIOL\NORGESTIMATE
  7. LINZESS [Suspect]
     Active Substance: LINACLOTIDE
     Indication: CONSTIPATION
     Dates: start: 20200327
  8. OLLY WOMENS DAILY MULTIVITAMIN [Concomitant]

REACTIONS (2)
  - Muscle spasms [None]
  - Abdominal rigidity [None]

NARRATIVE: CASE EVENT DATE: 20200329
